FAERS Safety Report 5930524-7 (Version None)
Quarter: 2008Q4

REPORT INFORMATION
  Report Type: 
  Country: None (occurrence: None)
  Receive Date: 20081026
  Receipt Date: 20081017
  Transmission Date: 20090506
  Serious: Yes (Hospitalization)
  Sender: FDA-Public Use
  Company Number: PHHY2008BE25522

PATIENT
  Sex: Female

DRUGS (4)
  1. RASILEZ [Suspect]
     Indication: HYPERTENSION
     Dosage: 150 MG
     Dates: start: 20080601, end: 20080901
  2. RASILEZ [Suspect]
     Dosage: 300 MG
     Route: 048
     Dates: start: 20080901
  3. COVERSYL [Concomitant]
  4. NOBITEN [Concomitant]

REACTIONS (2)
  - ANGINA PECTORIS [None]
  - HYPERTENSION [None]
